FAERS Safety Report 19377151 (Version 1)
Quarter: 2021Q2

REPORT INFORMATION
  Report Type: Spontaneous
  Country: SE (occurrence: SE)
  Receive Date: 20210604
  Receipt Date: 20210604
  Transmission Date: 20210717
  Serious: Yes (Disabling)
  Sender: FDA-Public Use
  Company Number: SE-GLAXOSMITHKLINE-SECH2021033644

PATIENT
  Age: 57 Year
  Sex: Female

DRUGS (3)
  1. VOLTAREN [Suspect]
     Active Substance: DICLOFENAC SODIUM
     Dosage: UNK, BEHANDLING UNDER 1?2 VECKOR
     Route: 048
     Dates: start: 200906
  2. VOLTAREN [Suspect]
     Active Substance: DICLOFENAC SODIUM
     Dosage: 150 MG, QD
     Route: 048
     Dates: start: 200901, end: 20090219
  3. VOLTAREN [Suspect]
     Active Substance: DICLOFENAC SODIUM
     Indication: BACK PAIN
     Dosage: UNK
     Route: 048
     Dates: start: 200812, end: 200901

REACTIONS (1)
  - Bone marrow oedema [Recovered/Resolved]

NARRATIVE: CASE EVENT DATE: 200902
